FAERS Safety Report 9314352 (Version 1)
Quarter: 2013Q2

REPORT INFORMATION
  Report Type: Spontaneous
  Country: US (occurrence: None)
  Receive Date: 20130522
  Receipt Date: 20130522
  Transmission Date: 20140414
  Serious: Yes (Hospitalization)
  Sender: FDA-Public Use
  Company Number: 13AE007

PATIENT
  Sex: 0

DRUGS (2)
  1. ASPIRIN [Suspect]
  2. APAP [Suspect]

REACTIONS (2)
  - Stevens-Johnson syndrome [None]
  - Hypersensitivity [None]
